FAERS Safety Report 24542922 (Version 1)
Quarter: 2024Q4

REPORT INFORMATION
  Report Type: Spontaneous
  Country: CN (occurrence: CN)
  Receive Date: 20241024
  Receipt Date: 20241024
  Transmission Date: 20250115
  Serious: Yes (Other)
  Sender: PFIZER
  Company Number: CN-PFIZER INC-PV202400135801

PATIENT
  Age: 59 Year
  Sex: Female
  Weight: 46 kg

DRUGS (4)
  1. EXEMESTANE [Suspect]
     Active Substance: EXEMESTANE
     Indication: Breast cancer
     Dosage: 25 MG, 1X/DAY (25MG PO QD)
     Route: 048
     Dates: start: 20240909, end: 20241008
  2. EXEMESTANE [Suspect]
     Active Substance: EXEMESTANE
     Indication: Hormone therapy
  3. ABEMACICLIB [Suspect]
     Active Substance: ABEMACICLIB
     Indication: Breast cancer
     Dosage: 150 MG, 2X/DAY (150MG PO BID)
     Route: 048
     Dates: start: 20240909, end: 20241008
  4. ABEMACICLIB [Suspect]
     Active Substance: ABEMACICLIB
     Indication: Hormone therapy

REACTIONS (1)
  - Myelosuppression [Recovered/Resolved]

NARRATIVE: CASE EVENT DATE: 20241008
